FAERS Safety Report 25526416 (Version 4)
Quarter: 2025Q3

REPORT INFORMATION
  Report Type: Spontaneous
  Country: TR (occurrence: TR)
  Receive Date: 20250707
  Receipt Date: 20250807
  Transmission Date: 20251021
  Serious: Yes (Life-Threatening, Other)
  Sender: AMERICAN REGENT
  Company Number: TR-AMERICAN REGENT INC-2025002620

PATIENT
  Age: 42 Year
  Sex: Female

DRUGS (2)
  1. FERINJECT [Suspect]
     Active Substance: FERRIC CARBOXYMALTOSE
     Indication: Blood iron decreased
     Route: 042
     Dates: start: 20250619, end: 20250619
  2. RIVAROXABAN [Concomitant]
     Active Substance: RIVAROXABAN
     Indication: Product used for unknown indication
     Route: 065

REACTIONS (33)
  - Feeling cold [Recovered/Resolved]
  - Bone pain [Recovering/Resolving]
  - Confusional state [Recovering/Resolving]
  - Vision blurred [Not Recovered/Not Resolved]
  - Abdominal distension [Recovering/Resolving]
  - Generalised oedema [Recovering/Resolving]
  - Enophthalmos [Recovering/Resolving]
  - Acne [Recovering/Resolving]
  - Fatigue [Recovering/Resolving]
  - Fatigue [Recovering/Resolving]
  - Mouth haemorrhage [Recovering/Resolving]
  - Gingival bleeding [Recovering/Resolving]
  - Drug ineffective [Unknown]
  - Near death experience [Unknown]
  - Myalgia [Recovering/Resolving]
  - Nervousness [Unknown]
  - Melanocytic naevus [Not Recovered/Not Resolved]
  - Nasal congestion [Not Recovered/Not Resolved]
  - Skin hyperpigmentation [Not Recovered/Not Resolved]
  - Alopecia [Not Recovered/Not Resolved]
  - Skin discolouration [Not Recovered/Not Resolved]
  - Somnolence [Recovering/Resolving]
  - Eye swelling [Recovering/Resolving]
  - Swelling face [Recovering/Resolving]
  - Chills [Recovered/Resolved]
  - Pyrexia [Not Recovered/Not Resolved]
  - Dyspnoea [Recovering/Resolving]
  - Dysgeusia [Recovering/Resolving]
  - Constipation [Recovered/Resolved]
  - Rash [Recovering/Resolving]
  - Syncope [Recovering/Resolving]
  - Acne [Unknown]
  - Contusion [Unknown]

NARRATIVE: CASE EVENT DATE: 20250101
